FAERS Safety Report 7378639-3 (Version None)
Quarter: 2011Q1

REPORT INFORMATION
  Report Type: 
  Country: None (occurrence: None)
  Receive Date: 20110323
  Receipt Date: 20110323
  Transmission Date: 20110831
  Serious: Yes (Other)
  Sender: FDA-Public Use
  Company Number: None

PATIENT
  Age: 64 Year
  Sex: Female
  Weight: 72.1219 kg

DRUGS (1)
  1. LEVAQUIN [Suspect]
     Indication: BRONCHITIS
     Dosage: 1 TABLET ONCE AT BEDTIME
     Dates: start: 20110106, end: 20110114

REACTIONS (4)
  - TENDON RUPTURE [None]
  - NERVE INJURY [None]
  - PAIN IN EXTREMITY [None]
  - MIDDLE INSOMNIA [None]
